FAERS Safety Report 17183528 (Version 2)
Quarter: 2019Q4

REPORT INFORMATION
  Report Type: Report from Study
  Country: US (occurrence: US)
  Receive Date: 20191220
  Receipt Date: 20191224
  Transmission Date: 20200122
  Serious: Yes (Other)
  Sender: FDA-Public Use
  Company Number: NVSC2019US073236

PATIENT
  Sex: Female

DRUGS (1)
  1. GLATOPA [Suspect]
     Active Substance: GLATIRAMER ACETATE
     Indication: PRODUCT USED FOR UNKNOWN INDICATION
     Dosage: 40 MG (3 TIMES A WEEK)
     Route: 058

REACTIONS (5)
  - Injection site discolouration [Unknown]
  - Progressive multiple sclerosis [Unknown]
  - Device breakage [Unknown]
  - Erythema [Unknown]
  - Hot flush [Unknown]
